FAERS Safety Report 18876619 (Version 1)
Quarter: 2021Q1

REPORT INFORMATION
  Report Type: Spontaneous
  Country: MY (occurrence: MY)
  Receive Date: 20210211
  Receipt Date: 20210211
  Transmission Date: 20210420
  Serious: No
  Sender: FDA-Public Use
  Company Number: MY-LUPIN PHARMACEUTICALS INC.-2021-01411

PATIENT
  Age: 65 Year
  Sex: Female

DRUGS (3)
  1. HYDROCORTISONE. [Suspect]
     Active Substance: HYDROCORTISONE
     Indication: ORGANISING PNEUMONIA
     Dosage: 100 MILLIGRAM, TID
     Route: 042
  2. PREDNISOLONE. [Concomitant]
     Active Substance: PREDNISOLONE
     Indication: ORGANISING PNEUMONIA
     Dosage: 10 MILLIGRAM, QD (FOR RHEUMATOID ARTHRITIS)
     Route: 048
  3. PREDNISOLONE. [Concomitant]
     Active Substance: PREDNISOLONE
     Indication: RHEUMATOID ARTHRITIS
     Dosage: 0.5 MILLIGRAM/KILOGRAM, QD (WITH SLOW TAPERING OVER 6 MONTHS FOR ORGANISING PNEUMONIA)
     Route: 048

REACTIONS (1)
  - Off label use [Unknown]
